FAERS Safety Report 25299176 (Version 1)
Quarter: 2025Q2

REPORT INFORMATION
  Report Type: Spontaneous
  Country: US (occurrence: US)
  Receive Date: 20250512
  Receipt Date: 20250512
  Transmission Date: 20250717
  Serious: Yes (Other)
  Sender: ABBVIE
  Company Number: US-ABBVIE-6269612

PATIENT
  Age: 86 Year
  Sex: Female

DRUGS (1)
  1. RESTASIS [Suspect]
     Active Substance: CYCLOSPORINE
     Indication: Dry eye
     Route: 047
     Dates: start: 202504

REACTIONS (5)
  - Skin cancer [Unknown]
  - Eye irritation [Not Recovered/Not Resolved]
  - Eye pain [Unknown]
  - Hypoaesthesia eye [Unknown]
  - Nerve injury [Unknown]

NARRATIVE: CASE EVENT DATE: 20250101
